FAERS Safety Report 13994023 (Version 2)
Quarter: 2017Q3

REPORT INFORMATION
  Report Type: Spontaneous
  Country: TW (occurrence: TW)
  Receive Date: 20170920
  Receipt Date: 20170929
  Transmission Date: 20171128
  Serious: Yes (Death)
  Sender: FDA-Public Use
  Company Number: TW-PFIZER INC-2017407211

PATIENT
  Age: 1 Year
  Sex: Male

DRUGS (5)
  1. IFOSFAMIDE. [Suspect]
     Active Substance: IFOSFAMIDE
     Indication: EXTRADURAL NEOPLASM
     Route: 008
  2. CYCLOPHOSPHAMIDE MONOHYDRATE [Suspect]
     Active Substance: CYCLOPHOSPHAMIDE
     Indication: EXTRADURAL NEOPLASM
     Route: 008
  3. ETOPOSIDE. [Suspect]
     Active Substance: ETOPOSIDE
     Indication: EXTRADURAL NEOPLASM
     Route: 008
  4. ADRIACIN [Suspect]
     Active Substance: DOXORUBICIN HYDROCHLORIDE
     Indication: EXTRADURAL NEOPLASM
     Route: 008
  5. VINCRISTINE SULFATE. [Suspect]
     Active Substance: VINCRISTINE SULFATE
     Indication: EXTRADURAL NEOPLASM
     Route: 008

REACTIONS (3)
  - Staphylococcal sepsis [Fatal]
  - Pneumonia [Fatal]
  - Acute lung injury [Fatal]
